FAERS Safety Report 15523689 (Version 2)
Quarter: 2018Q4

REPORT INFORMATION
  Report Type: Spontaneous
  Country: US (occurrence: US)
  Receive Date: 20181019
  Receipt Date: 20181031
  Transmission Date: 20190205
  Serious: No
  Sender: FDA-Public Use
  Company Number: US-HORIZON-PEN-1122-2018

PATIENT
  Age: 40 Year
  Sex: Female

DRUGS (7)
  1. LEVOTHYROXINE. [Concomitant]
     Active Substance: LEVOTHYROXINE
  2. MAGNESIUM [Concomitant]
     Active Substance: MAGNESIUM
  3. TYLENOL [Concomitant]
     Active Substance: ACETAMINOPHEN
  4. NP THYROID [Concomitant]
     Active Substance: LEVOTHYROXINE\LIOTHYRONINE
  5. PENNSAID [Suspect]
     Active Substance: DICLOFENAC SODIUM
     Indication: CHONDROCALCINOSIS PYROPHOSPHATE
     Dosage: 2 PUMPS TWICE A DAY
     Route: 061
     Dates: start: 20181006, end: 20181009
  6. PROGESTERONE. [Concomitant]
     Active Substance: PROGESTERONE
  7. MOTRIN [Concomitant]
     Active Substance: IBUPROFEN

REACTIONS (3)
  - Skin hypertrophy [Recovered/Resolved]
  - Off label use [Unknown]
  - Erythema [Recovered/Resolved]

NARRATIVE: CASE EVENT DATE: 20181006
